FAERS Safety Report 22246114 (Version 1)
Quarter: 2023Q2

REPORT INFORMATION
  Report Type: Spontaneous
  Country: TR (occurrence: TR)
  Receive Date: 20230424
  Receipt Date: 20230424
  Transmission Date: 20230721
  Serious: Yes (Hospitalization)
  Sender: FDA-Public Use
  Company Number: TR-MEDICUREINC-2023TRLIT00005

PATIENT
  Age: 59 Year
  Sex: Male

DRUGS (1)
  1. TIROFIBAN [Suspect]
     Active Substance: TIROFIBAN
     Indication: Thrombosis
     Route: 041

REACTIONS (5)
  - Hypotension [Recovered/Resolved]
  - Hyperhidrosis [Recovered/Resolved]
  - Nausea [Recovered/Resolved]
  - Pericardial haemorrhage [Recovered/Resolved]
  - Pericardial effusion [Recovered/Resolved]
